FAERS Safety Report 25657293 (Version 2)
Quarter: 2025Q3

REPORT INFORMATION
  Report Type: Report from Study
  Country: US (occurrence: US)
  Receive Date: 20250808
  Receipt Date: 20250829
  Transmission Date: 20251021
  Serious: Yes (Other)
  Sender: ACADIA PHARMACEUTICALS
  Company Number: US-ACADIA PHARMACEUTICALS INC.-ACA-2025-TRF-008935

PATIENT
  Age: 8 Year
  Sex: Female
  Weight: 14.15 kg

DRUGS (4)
  1. DAYBUE [Suspect]
     Active Substance: TROFINETIDE
     Indication: Rett syndrome
     Dosage: 30 MILLILITER, BID
     Route: 048
     Dates: start: 20240813
  2. DAYBUE [Suspect]
     Active Substance: TROFINETIDE
     Dosage: 20 ML IN THE AM, 40 ML IN THE PM, (BID)
     Route: 048
     Dates: end: 20250723
  3. HYDROCORTISONE [Concomitant]
     Active Substance: HYDROCORTISONE
     Dosage: UNK, BID APPLY A SMALL AMOUNT TOP TWICE A DAY
     Dates: start: 20240520
  4. ZONISAMIDE [Concomitant]
     Active Substance: ZONISAMIDE
     Dosage: 150 MILLIGRAM, QD (3 CAPSULE BY MOUTH ONCE A DAY)
     Route: 048

REACTIONS (10)
  - Failure to thrive [Unknown]
  - Seizure [Unknown]
  - Weight gain poor [Unknown]
  - Psychomotor skills impaired [Unknown]
  - Short stature [Unknown]
  - Enuresis [Unknown]
  - Encopresis [Unknown]
  - Diarrhoea [Unknown]
  - Incorrect dose administered [Unknown]
  - Drug ineffective [Unknown]

NARRATIVE: CASE EVENT DATE: 20250307
